FAERS Safety Report 6908145-9 (Version None)
Quarter: 2010Q3

REPORT INFORMATION
  Report Type: 
  Country: None (occurrence: None)
  Receive Date: 20100720
  Receipt Date: 20100622
  Transmission Date: 20110219
  Serious: No
  Sender: FDA-Public Use
  Company Number: 2010-00500

PATIENT
  Age: 65 Year
  Sex: Female
  Weight: 81.6475 kg

DRUGS (3)
  1. ZICAM COLD REMEDY NASAL GEL [Suspect]
     Dosage: 1 DOSE
     Dates: start: 20100615, end: 20100615
  2. SIMVASTATIN [Concomitant]
  3. METOPROLOL [Concomitant]

REACTIONS (2)
  - ANOSMIA [None]
  - NASAL DISCOMFORT [None]
